FAERS Safety Report 14455801 (Version 1)
Quarter: 2018Q1

REPORT INFORMATION
  Report Type: Spontaneous
  Country: TR (occurrence: TR)
  Receive Date: 20180130
  Receipt Date: 20180130
  Transmission Date: 20180509
  Serious: Yes (Other)
  Sender: FDA-Public Use
  Company Number: TR-ACCORD-062914

PATIENT
  Age: 45 Year
  Sex: Female

DRUGS (3)
  1. MEROPENEM. [Concomitant]
     Active Substance: MEROPENEM
  2. LEVETIRACETAM. [Suspect]
     Active Substance: LEVETIRACETAM
     Indication: SEIZURE
  3. CHLORAMPHENICOL [Concomitant]
     Active Substance: CHLORAMPHENICOL

REACTIONS (4)
  - Infection [Recovered/Resolved]
  - Hypogammaglobulinaemia [Recovered/Resolved]
  - Meningitis [Recovered/Resolved]
  - Aplasia [Recovered/Resolved]
